FAERS Safety Report 5032375-7 (Version None)
Quarter: 2006Q2

REPORT INFORMATION
  Report Type: 
  Country: None (occurrence: None)
  Receive Date: 20060621
  Receipt Date: 20060621
  Transmission Date: 20061013
  Serious: Yes (Other)
  Sender: FDA-Public Use
  Company Number: None

PATIENT
  Age: 27 Year
  Sex: Female
  Weight: 20.9 kg

DRUGS (2)
  1. CEREBYX [Suspect]
     Indication: CONVULSION
     Dosage: 300 MG ONCE IV
     Route: 042
     Dates: start: 20060423
  2. CEREBYX [Suspect]
     Dosage: 50 MG TID IV
     Route: 042
     Dates: start: 20060423, end: 20060424

REACTIONS (1)
  - PANCYTOPENIA [None]
